FAERS Safety Report 18242833 (Version 2)
Quarter: 2020Q4

REPORT INFORMATION
  Report Type: Spontaneous
  Country: US (occurrence: US)
  Receive Date: 20200908
  Receipt Date: 20201020
  Transmission Date: 20210113
  Serious: No
  Sender: FDA-Public Use
  Company Number: US-PFIZER INC-2020342742

PATIENT
  Age: 69 Year
  Sex: Female

DRUGS (1)
  1. IBRANCE [Suspect]
     Active Substance: PALBOCICLIB
     Indication: BREAST CANCER METASTATIC
     Dosage: 100 MG, CYCLIC (3 WEEKS 21 DAYS, THEN OFF 7 DAYS)
     Route: 048
     Dates: end: 2020

REACTIONS (8)
  - Product storage error [Unknown]
  - Nerve compression [Unknown]
  - Arthritis [Unknown]
  - White blood cell count abnormal [Unknown]
  - Asthenia [Unknown]
  - Trigger finger [Unknown]
  - Neutrophil count decreased [Unknown]
  - Tremor [Unknown]

NARRATIVE: CASE EVENT DATE: 2020
